FAERS Safety Report 25621836 (Version 1)
Quarter: 2025Q3

REPORT INFORMATION
  Report Type: Spontaneous
  Country: US (occurrence: None)
  Receive Date: 20250729
  Receipt Date: 20250729
  Transmission Date: 20251020
  Serious: No
  Sender: FDA-CTU
  Company Number: None

PATIENT
  Sex: Male

DRUGS (2)
  1. AMVUTTRA [Suspect]
     Active Substance: VUTRISIRAN
  2. ATTRUBY [Concomitant]
     Active Substance: ACORAMIDIS HYDROCHLORIDE

REACTIONS (3)
  - Gait disturbance [None]
  - Injection site pain [None]
  - Therapy cessation [None]
